FAERS Safety Report 7522969-9 (Version None)
Quarter: 2011Q2

REPORT INFORMATION
  Report Type: 
  Country: None (occurrence: None)
  Receive Date: 20110525
  Receipt Date: 20110511
  Transmission Date: 20111010
  Serious: Yes (Other)
  Sender: FDA-Public Use
  Company Number: AE 2011-206

PATIENT
  Age: 48 Year
  Sex: Female

DRUGS (2)
  1. VYTORIN [Concomitant]
  2. ELESTRIN [Suspect]
     Indication: AUTONOMIC NERVOUS SYSTEM IMBALANCE
     Dosage: 1 PUMP DAILY, TOPICALLY
     Route: 061
     Dates: start: 20110411, end: 20110505

REACTIONS (8)
  - THROAT IRRITATION [None]
  - ANXIETY [None]
  - HEADACHE [None]
  - PHARYNGEAL OEDEMA [None]
  - OESOPHAGEAL STENOSIS [None]
  - SENSATION OF FOREIGN BODY [None]
  - MOOD ALTERED [None]
  - DYSPNOEA [None]
